FAERS Safety Report 6047857-9 (Version None)
Quarter: 2009Q1

REPORT INFORMATION
  Report Type: 
  Country: None (occurrence: None)
  Receive Date: 20090123
  Receipt Date: 20090114
  Transmission Date: 20090719
  Serious: Yes (Hospitalization, Other)
  Sender: FDA-Public Use
  Company Number: US-BAYER-200911080NA

PATIENT
  Age: 30 Year
  Sex: Female
  Weight: 70 kg

DRUGS (1)
  1. MIRENA [Suspect]
     Indication: CONTRACEPTION
     Route: 015
     Dates: start: 20080722, end: 20081125

REACTIONS (15)
  - AMBLYOPIA [None]
  - BACK PAIN [None]
  - COGNITIVE DISORDER [None]
  - DIARRHOEA [None]
  - DYSARTHRIA [None]
  - FACIAL PALSY [None]
  - FACIAL PARESIS [None]
  - HAEMATURIA [None]
  - MIGRAINE [None]
  - OVARIAN CYST [None]
  - SENSATION OF HEAVINESS [None]
  - SINUSITIS [None]
  - SLEEP DISORDER [None]
  - VISION BLURRED [None]
  - WEIGHT DECREASED [None]
